FAERS Safety Report 5819764-5 (Version None)
Quarter: 2008Q3

REPORT INFORMATION
  Report Type: 
  Country: None (occurrence: None)
  Receive Date: 20080718
  Receipt Date: 20080428
  Transmission Date: 20090109
  Serious: Yes (Other)
  Sender: FDA-Public Use
  Company Number: 2008EU000908

PATIENT
  Age: 49 Year
  Sex: Female

DRUGS (3)
  1. TACROLIMUS [Suspect]
     Indication: LIVER TRANSPLANT
     Dosage: 3 MG, BID, UNKNOWN
  2. MYCOPHENOLATE MOFETIL [Suspect]
     Indication: LIVER TRANSPLANT
     Dosage: 1.5 MG, BID
  3. PREDNISONE [Suspect]
     Indication: LIVER TRANSPLANT
     Dosage: 20 MG, UID/QD

REACTIONS (2)
  - BLOOD ALKALINE PHOSPHATASE INCREASED [None]
  - LIPOMATOSIS [None]
